FAERS Safety Report 19265160 (Version 4)
Quarter: 2021Q2

REPORT INFORMATION
  Report Type: Report from Study
  Country: US (occurrence: US)
  Receive Date: 20210517
  Receipt Date: 20210601
  Transmission Date: 20210717
  Serious: Yes (Other)
  Sender: FDA-Public Use
  Company Number: NVSC2021US105098

PATIENT
  Sex: Female
  Weight: 68.98 kg

DRUGS (2)
  1. TREPROSTINIL. [Suspect]
     Active Substance: TREPROSTINIL
     Indication: PULMONARY ARTERIAL HYPERTENSION
     Dosage: (10 NG/KG/MIN) CONT
     Route: 042
     Dates: start: 20210305
  2. SILDENAFIL CITRATE. [Concomitant]
     Active Substance: SILDENAFIL CITRATE
     Indication: PRODUCT USED FOR UNKNOWN INDICATION
     Dosage: UNK
     Route: 065

REACTIONS (8)
  - Skin irritation [Unknown]
  - Rash [Unknown]
  - Loss of consciousness [Unknown]
  - Fatigue [Unknown]
  - Anxiety [Unknown]
  - Pruritus [Unknown]
  - Poor quality product administered [Unknown]
  - Dizziness [Unknown]
